FAERS Safety Report 10142086 (Version 1)
Quarter: 2014Q2

REPORT INFORMATION
  Report Type: Spontaneous
  Country: PE (occurrence: PE)
  Receive Date: 20140429
  Receipt Date: 20140429
  Transmission Date: 20141212
  Serious: Yes (Other)
  Sender: FDA-Public Use
  Company Number: PE-PFIZER INC-2014117855

PATIENT
  Age: 58 Year
  Sex: Male

DRUGS (1)
  1. NORVASTOR [Suspect]
     Route: 048

REACTIONS (1)
  - Small intestine carcinoma [Recovered/Resolved]
